FAERS Safety Report 13256150 (Version 1)
Quarter: 2017Q1

REPORT INFORMATION
  Report Type: Spontaneous
  Country: GB (occurrence: GB)
  Receive Date: 20170221
  Receipt Date: 20170221
  Transmission Date: 20170428
  Serious: Yes (Hospitalization, Other)
  Sender: FDA-Public Use
  Company Number: GB-TEVA-740951ACC

PATIENT
  Age: 98 Year
  Sex: Female

DRUGS (14)
  1. GTN [Concomitant]
     Active Substance: NITROGLYCERIN
     Route: 060
  2. IBUPROFEN. [Concomitant]
     Active Substance: IBUPROFEN
  3. PARACETAMOL [Concomitant]
     Active Substance: ACETAMINOPHEN
  4. LEVETIRACETAM. [Suspect]
     Active Substance: LEVETIRACETAM
     Dosage: 500 MILLIGRAM DAILY;
     Route: 048
  5. LANSOPRAZOLE. [Concomitant]
     Active Substance: LANSOPRAZOLE
  6. AMOXICILLIN. [Concomitant]
     Active Substance: AMOXICILLIN
  7. FERROUS SULFATE. [Concomitant]
     Active Substance: FERROUS SULFATE
  8. RANITIDINE. [Concomitant]
     Active Substance: RANITIDINE
  9. SIMVASTATIN. [Concomitant]
     Active Substance: SIMVASTATIN
  10. COLECALCIFEROL [Concomitant]
     Active Substance: CHOLECALCIFEROL
  11. ASPIRIN. [Concomitant]
     Active Substance: ASPIRIN
  12. BISOPROLOL [Concomitant]
     Active Substance: BISOPROLOL
  13. CYANOCOBALAMIN. [Concomitant]
     Active Substance: CYANOCOBALAMIN
  14. SALBUTAMOL [Concomitant]
     Active Substance: ALBUTEROL

REACTIONS (3)
  - Pancytopenia [Recovering/Resolving]
  - Epistaxis [Recovered/Resolved]
  - Acute kidney injury [Unknown]
